FAERS Safety Report 9845506 (Version 1)
Quarter: 2014Q1

REPORT INFORMATION
  Report Type: Spontaneous
  Country: US (occurrence: None)
  Receive Date: 20140122
  Receipt Date: 20140122
  Transmission Date: 20141002
  Serious: Yes (Death)
  Sender: FDA-Public Use
  Company Number: POI0573201400014

PATIENT
  Age: 59 Year
  Sex: Female

DRUGS (5)
  1. OXYBUTYNIN CHLORIDE EXTENDED RELEASE [Suspect]
     Route: 048
     Dates: end: 2012
  2. DULOXETINE [Suspect]
     Route: 048
     Dates: end: 2012
  3. QUETIAPINE [Suspect]
     Route: 048
  4. DIAZEPAM [Suspect]
     Route: 048
  5. ZOLPIDEM [Suspect]
     Route: 048
     Dates: end: 2012

REACTIONS (4)
  - Respiratory arrest [None]
  - Cardiac arrest [None]
  - Completed suicide [None]
  - Exposure via ingestion [None]
